FAERS Safety Report 11540495 (Version 1)
Quarter: 2015Q3

REPORT INFORMATION
  Report Type: Spontaneous
  Country: US (occurrence: US)
  Receive Date: 20150923
  Receipt Date: 20150923
  Transmission Date: 20151125
  Serious: No
  Sender: FDA-Public Use
  Company Number: US-BEH-2015048262

PATIENT
  Sex: Female
  Weight: 148 kg

DRUGS (28)
  1. PRIVIGEN [Suspect]
     Active Substance: HUMAN IMMUNOGLOBULIN G
     Dosage: 20 GM VIAL; 60 GM EVERY 4 WEEKS; DOSING PERIOD 24FEB2015 TO 23MAR2015
     Route: 042
  2. DEXAMETHASONE. [Concomitant]
     Active Substance: DEXAMETHASONE
  3. EPIPEN [Concomitant]
     Active Substance: EPINEPHRINE
  4. FLUOXETINE [Concomitant]
     Active Substance: FLUOXETINE\FLUOXETINE HYDROCHLORIDE
  5. MULTIVITAMIN [Concomitant]
     Active Substance: VITAMINS
  6. SUPER B COMPLEX [Concomitant]
     Active Substance: CYANOCOBALAMIN\DEXPANTHENOL\NIACINAMIDE\PYRIDOXINE HYDROCHLORIDE\RIBOFLAVIN 5^-PHOSPHATE SODIUM\THIAMINE HYDROCHLORIDE\VITAMIN B COMPLEX
  7. DICLOFENAC SODIUM. [Concomitant]
     Active Substance: DICLOFENAC SODIUM
  8. VITAMIN A [Concomitant]
     Active Substance: VITAMIN A
  9. NORMAL SALINE [Concomitant]
     Active Substance: SODIUM CHLORIDE
  10. KLONOPIN [Concomitant]
     Active Substance: CLONAZEPAM
  11. RESTORIL [Concomitant]
     Active Substance: TEMAZEPAM
  12. ASPIRIN. [Concomitant]
     Active Substance: ASPIRIN
  13. VITAMIN B12 [Concomitant]
     Active Substance: CYANOCOBALAMIN
  14. VITAMIN D3 [Concomitant]
     Active Substance: CHOLECALCIFEROL
  15. CLONIDINE. [Concomitant]
     Active Substance: CLONIDINE
  16. DIPHENHYDRAMINE. [Concomitant]
     Active Substance: DIPHENHYDRAMINE
  17. FLONASE [Concomitant]
     Active Substance: FLUTICASONE PROPIONATE
  18. FLOVENT [Concomitant]
     Active Substance: FLUTICASONE PROPIONATE
  19. LISINOPRIL. [Concomitant]
     Active Substance: LISINOPRIL
  20. SELENIUM [Concomitant]
     Active Substance: SELENIUM
  21. HYDROCHLOROTHIAZIDE. [Concomitant]
     Active Substance: HYDROCHLOROTHIAZIDE
  22. MAXAIR [Concomitant]
     Active Substance: PIRBUTEROL ACETATE
  23. PRIVIGEN [Suspect]
     Active Substance: HUMAN IMMUNOGLOBULIN G
     Indication: IMMUNODEFICIENCY COMMON VARIABLE
     Dosage: 20 GM; 60 GM EVERY 4 WEEKS; DOSING PERIOD 02JAN2015 TO 29JAN2015
     Route: 042
  24. SODIUM CHLORIDE. [Concomitant]
     Active Substance: SODIUM CHLORIDE
  25. ZINC PICOLINATE [Concomitant]
     Active Substance: ZINC PICOLINATE
  26. VITAMIN C [Concomitant]
     Active Substance: ASCORBIC ACID
  27. OXYGEN. [Concomitant]
     Active Substance: OXYGEN
  28. IBUPROFEN. [Concomitant]
     Active Substance: IBUPROFEN

REACTIONS (1)
  - Sinusitis [Not Recovered/Not Resolved]
